FAERS Safety Report 18102523 (Version 2)
Quarter: 2020Q4

REPORT INFORMATION
  Report Type: Spontaneous
  Country: JP (occurrence: JP)
  Receive Date: 20200803
  Receipt Date: 20201009
  Transmission Date: 20210113
  Serious: Yes (Life-Threatening, Hospitalization, Other)
  Sender: FDA-Public Use
  Company Number: JP-TEVA-202007_00009970

PATIENT
  Age: 64 Year
  Sex: Female

DRUGS (20)
  1. RITUXAN [Suspect]
     Active Substance: RITUXIMAB
     Route: 065
  2. RITUXAN [Suspect]
     Active Substance: RITUXIMAB
     Route: 065
  3. OBINUTUZUMAB. [Suspect]
     Active Substance: OBINUTUZUMAB
     Indication: LYMPHADENOPATHY
     Route: 065
  4. TAKEPRON CAPSULES 15 [Suspect]
     Active Substance: LANSOPRAZOLE
     Indication: GASTROOESOPHAGEAL REFLUX DISEASE
     Route: 065
  5. ETOPOSIDE. [Suspect]
     Active Substance: ETOPOSIDE
     Indication: B-CELL LYMPHOMA
     Route: 065
  6. SOL-MELCORT [Suspect]
     Active Substance: METHYLPREDNISOLONE SODIUM SUCCINATE
     Indication: B-CELL LYMPHOMA
     Route: 065
  7. PREDONINE [Suspect]
     Active Substance: PREDNISOLONE
     Indication: POLYMYOSITIS
     Dosage: 5 MILLIGRAM DAILY;
     Route: 065
  8. OBINUTUZUMAB. [Suspect]
     Active Substance: OBINUTUZUMAB
     Route: 065
  9. CYTARABINE. [Suspect]
     Active Substance: CYTARABINE
     Indication: B-CELL LYMPHOMA
     Route: 065
  10. RITUXAN [Suspect]
     Active Substance: RITUXIMAB
     Indication: B-CELL LYMPHOMA
     Route: 065
  11. CYCLOPHOSPHAMIDE HYDRATE [Suspect]
     Active Substance: CYCLOPHOSPHAMIDE
     Indication: LYMPHADENOPATHY
     Route: 065
  12. CYCLOPHOSPHAMIDE HYDRATE [Suspect]
     Active Substance: CYCLOPHOSPHAMIDE
     Indication: B-CELL LYMPHOMA
     Route: 065
  13. CARBOPLATIN. [Suspect]
     Active Substance: CARBOPLATIN
     Indication: B-CELL LYMPHOMA
     Route: 065
  14. BENDAMUSTINE HYDROCHLORIDE. [Suspect]
     Active Substance: BENDAMUSTINE HYDROCHLORIDE
     Indication: B-CELL LYMPHOMA
     Route: 065
  15. PREDONINE [Suspect]
     Active Substance: PREDNISOLONE
     Indication: B-CELL LYMPHOMA
     Route: 065
  16. VALSARTAN. [Concomitant]
     Active Substance: VALSARTAN
     Indication: HYPERTENSION
     Route: 065
  17. PREDONINE [Suspect]
     Active Substance: PREDNISOLONE
     Indication: LYMPHADENOPATHY
     Route: 065
  18. VINCRISTINE SULFATE. [Suspect]
     Active Substance: VINCRISTINE SULFATE
     Indication: LYMPHADENOPATHY
     Route: 065
  19. ADRIACIN [Suspect]
     Active Substance: DOXORUBICIN HYDROCHLORIDE
     Indication: B-CELL LYMPHOMA
     Route: 065
  20. VINCRISTINE SULFATE. [Suspect]
     Active Substance: VINCRISTINE SULFATE
     Indication: B-CELL LYMPHOMA
     Route: 065

REACTIONS (3)
  - Listeriosis [Recovering/Resolving]
  - Listeria sepsis [Recovering/Resolving]
  - Listeria encephalitis [Recovered/Resolved]
